FAERS Safety Report 11723941 (Version 3)
Quarter: 2016Q2

REPORT INFORMATION
  Report Type: Spontaneous
  Country: US (occurrence: US)
  Receive Date: 20151111
  Receipt Date: 20160421
  Transmission Date: 20160815
  Serious: Yes (Hospitalization)
  Sender: FDA-Public Use
  Company Number: US-TURING PHARMACEUTICALS-2015TNG00057

PATIENT
  Age: 36 Year
  Sex: Female
  Weight: 53.61 kg

DRUGS (9)
  1. PYRIMETHAMINE [Suspect]
     Active Substance: PYRIMETHAMINE
     Indication: CONGENITAL TOXOPLASMOSIS
     Dosage: LOADING DOSE
     Route: 048
     Dates: start: 2015, end: 201510
  2. CLARITHROMYCIN. [Suspect]
     Active Substance: CLARITHROMYCIN
     Dosage: UNK
  3. UNKNOWN ANTIBIOTIC [Concomitant]
     Active Substance: UNSPECIFIED INGREDIENT
     Dosage: UNK
     Dates: start: 20151012
  4. PYRIMETHAMINE [Suspect]
     Active Substance: PYRIMETHAMINE
     Dosage: 25 MG, 1X/DAY
     Route: 048
     Dates: start: 20160321
  5. ERYTHROMYCIN. [Concomitant]
     Active Substance: ERYTHROMYCIN
     Dosage: UNK
     Dates: start: 20151012
  6. CLARITHROMYCIN. [Suspect]
     Active Substance: CLARITHROMYCIN
     Dosage: UNK
  7. PYRIMETHAMINE [Suspect]
     Active Substance: PYRIMETHAMINE
     Indication: INFECTION PARASITIC
     Dosage: 25 MG, 2X/DAY
     Route: 048
     Dates: start: 201510, end: 20160314
  8. UNKNOWN ALLERGY MEDICATION [Concomitant]
  9. BACTRIM [Concomitant]
     Active Substance: SULFAMETHOXAZOLE\TRIMETHOPRIM
     Dosage: UNK
     Dates: start: 20151012

REACTIONS (15)
  - Dehydration [Unknown]
  - Weight decreased [Not Recovered/Not Resolved]
  - Hypotension [Unknown]
  - Dysbacteriosis [Unknown]
  - Arrhythmia [Unknown]
  - Headache [Unknown]
  - Pyrexia [Recovered/Resolved]
  - Nausea [Unknown]
  - Malaise [Unknown]
  - Gastrointestinal disorder [Recovered/Resolved]
  - Diarrhoea [Recovered/Resolved]
  - Asthenia [Not Recovered/Not Resolved]
  - Drug level increased [Unknown]
  - Wolff-Parkinson-White syndrome [None]
  - Tachycardia [Unknown]

NARRATIVE: CASE EVENT DATE: 201510
